FAERS Safety Report 9429013 (Version 1)
Quarter: 2013Q3

REPORT INFORMATION
  Report Type: Report from Study
  Country: US (occurrence: US)
  Receive Date: 20130730
  Receipt Date: 20130730
  Transmission Date: 20140515
  Serious: No
  Sender: FDA-Public Use
  Company Number: US-ABBOTT-12P-163-1010577-00

PATIENT
  Sex: Male
  Weight: 108.96 kg

DRUGS (5)
  1. NIASPAN (COATED) [Suspect]
     Dosage: 500 MG DAILY
     Route: 048
  2. NIASPAN (COATED) [Suspect]
     Indication: BLOOD TRIGLYCERIDES INCREASED
     Dosage: 2000MG TOTAL DAILY (2 TABLETS)
  3. LISINOPRIL [Concomitant]
     Indication: PRODUCT USED FOR UNKNOWN INDICATION
  4. LIPITOR [Concomitant]
     Indication: PRODUCT USED FOR UNKNOWN INDICATION
  5. OMEPRAZOLE [Concomitant]
     Indication: PRODUCT USED FOR UNKNOWN INDICATION

REACTIONS (3)
  - Flushing [Not Recovered/Not Resolved]
  - Flushing [Recovered/Resolved]
  - Erythema [Recovered/Resolved]
